FAERS Safety Report 7527457-1 (Version None)
Quarter: 2011Q2

REPORT INFORMATION
  Report Type: 
  Country: None (occurrence: None)
  Receive Date: 20110527
  Receipt Date: 20110519
  Transmission Date: 20111010
  Serious: Yes (Hospitalization)
  Sender: FDA-Public Use
  Company Number: UTC-007302

PATIENT
  Age: 75 Year
  Sex: Female
  Weight: 70.5 kg

DRUGS (5)
  1. REVATIO [Concomitant]
  2. DIURETICS (DIURETICS) [Concomitant]
  3. TRACLEER [Concomitant]
  4. REMODULIN [Suspect]
     Indication: PULMONARY ARTERIAL HYPERTENSION
     Dosage: 20.16 UG/KG (0.014 UG/KG, 1 IN 1 MIN, INTRAVENOUS)
     Route: 042
     Dates: start: 20110111
  5. COUMADIN [Concomitant]

REACTIONS (8)
  - RETCHING [None]
  - BLOOD CREATININE INCREASED [None]
  - FEELING ABNORMAL [None]
  - BLOOD ALKALINE PHOSPHATASE INCREASED [None]
  - PULMONARY OEDEMA [None]
  - INTERNATIONAL NORMALISED RATIO INCREASED [None]
  - HYPERCOAGULATION [None]
  - DIARRHOEA [None]
